FAERS Safety Report 5175230-4 (Version None)
Quarter: 2006Q4

REPORT INFORMATION
  Report Type: 
  Country: None (occurrence: None)
  Receive Date: 20061206
  Receipt Date: 20061127
  Transmission Date: 20070319
  Serious: Yes (Hospitalization)
  Sender: FDA-Public Use
  Company Number: GXKR2006FR07740

PATIENT
  Age: 69 Year
  Sex: Female

DRUGS (5)
  1. FLUOXETINE [Suspect]
     Indication: ANXIETY
     Dosage: 20 MG, ORAL
     Route: 048
     Dates: start: 20060807, end: 20060821
  2. LORAZEPAM [Concomitant]
  3. LEXOMIL (BROMAZEPAM) [Concomitant]
  4. AMARYL [Concomitant]
  5. STAGID (METFORMIN EMBONATE) [Concomitant]

REACTIONS (3)
  - CONFUSIONAL STATE [None]
  - HYPONATRAEMIA [None]
  - WRONG DRUG ADMINISTERED [None]
